FAERS Safety Report 7544928-2 (Version None)
Quarter: 2011Q2

REPORT INFORMATION
  Report Type: 
  Country: None (occurrence: None)
  Receive Date: 20110614
  Receipt Date: 20110526
  Transmission Date: 20111010
  Serious: Yes (Hospitalization, Other)
  Sender: FDA-Public Use
  Company Number: US-BAYER-2010-009239

PATIENT
  Age: 41 Year
  Sex: Female
  Weight: 99.773 kg

DRUGS (10)
  1. YASMIN [Suspect]
     Indication: CONTRACEPTION
     Dosage: UNK
     Dates: start: 20050801, end: 20081008
  2. FIORICET [Concomitant]
     Dosage: 1 TABLET AS NEEDED EVERY SIX HOURS
     Route: 048
  3. YASMIN [Suspect]
     Indication: PREMENSTRUAL SYNDROME
  4. ALLEGRA D 24 HOUR [Concomitant]
  5. HEPARIN [Concomitant]
     Dosage: UNK
     Dates: start: 20081003
  6. DROSPIRENONE AND ETHINYL ESTRADIOL [Suspect]
     Indication: CONTRACEPTION
     Dosage: UNK
     Dates: start: 20050801, end: 20081001
  7. DROSPIRENONE AND ETHINYL ESTRADIOL [Suspect]
     Indication: PREMENSTRUAL SYNDROME
  8. ACETAMINOPHEN [Concomitant]
     Dosage: 650 MG AS NEEDED EVERY SIX HOURS
     Route: 048
  9. CLARITIN-D 24 HOUR [Concomitant]
     Dosage: 1 DF, UNK
     Route: 048
  10. FLAGYL [Concomitant]

REACTIONS (4)
  - SUPERIOR SAGITTAL SINUS THROMBOSIS [None]
  - PAIN [None]
  - INJURY [None]
  - FEAR OF DISEASE [None]
